FAERS Safety Report 19988224 (Version 2)
Quarter: 2022Q3

REPORT INFORMATION
  Report Type: Spontaneous
  Country: US (occurrence: US)
  Receive Date: 20211022
  Receipt Date: 20220825
  Transmission Date: 20221027
  Serious: Yes (Other)
  Sender: FDA-Public Use
  Company Number: US-ELI_LILLY_AND_COMPANY-US202110005146

PATIENT
  Age: 80 Year
  Sex: Female

DRUGS (4)
  1. EVISTA [Suspect]
     Active Substance: RALOXIFENE HYDROCHLORIDE
     Indication: Osteoporosis
     Dosage: UNK UNK, UNKNOWN
     Route: 065
  2. EVISTA [Suspect]
     Active Substance: RALOXIFENE HYDROCHLORIDE
     Indication: Neoplasm prophylaxis
  3. CALCIUM [Concomitant]
     Active Substance: CALCIUM
     Indication: Osteoporosis
     Dosage: UNK, UNKNOWN
     Route: 065
  4. MAGNESIUM [Concomitant]
     Active Substance: MAGNESIUM
     Indication: Osteoporosis
     Dosage: UNK, UNKNOWN
     Route: 065

REACTIONS (9)
  - Arthropathy [Recovered/Resolved]
  - Osteopenia [Unknown]
  - COVID-19 [Unknown]
  - Hypoacusis [Unknown]
  - Neurosis [Unknown]
  - Insomnia [Unknown]
  - Arthritis [Unknown]
  - Depression [Unknown]
  - Thrombosis [Unknown]
